FAERS Safety Report 8482490-0 (Version None)
Quarter: 2012Q3

REPORT INFORMATION
  Report Type: 
  Country: None (occurrence: None)
  Receive Date: 20120702
  Receipt Date: 20120625
  Transmission Date: 20120928
  Serious: Yes (Other)
  Sender: FDA-Public Use
  Company Number: PHHY2012US054281

PATIENT
  Age: 63 Year
  Sex: Female

DRUGS (3)
  1. ASCRIPTIN BUFFERED CAPS UNKNOWN FORMULA [Suspect]
     Indication: MUSCLE SPASMS
     Dosage: 1-2 DF
     Route: 048
  2. HYDROCODONE [Concomitant]
  3. XANAX [Concomitant]

REACTIONS (5)
  - OSTEOARTHRITIS [None]
  - RHEUMATOID ARTHRITIS [None]
  - FIBROMYALGIA [None]
  - INCORRECT DRUG ADMINISTRATION DURATION [None]
  - EXPIRED DRUG ADMINISTERED [None]
